FAERS Safety Report 19452491 (Version 2)
Quarter: 2022Q3

REPORT INFORMATION
  Report Type: Spontaneous
  Country: FR (occurrence: FR)
  Receive Date: 20210623
  Receipt Date: 20220829
  Transmission Date: 20221027
  Serious: Yes (Death, Other)
  Sender: FDA-Public Use
  Company Number: FR-SUN PHARMACEUTICAL INDUSTRIES LTD-2021R1-301184

PATIENT
  Age: 59 Year
  Sex: Male

DRUGS (6)
  1. TESTOSTERONE [Suspect]
     Active Substance: TESTOSTERONE
     Indication: Product used for unknown indication
     Dosage: 140 PG/MG
     Route: 065
  2. TESTOSTERONE PROPIONATE [Suspect]
     Active Substance: TESTOSTERONE PROPIONATE
     Indication: Product used for unknown indication
     Dosage: 605 PG/MG
     Route: 065
  3. TESTOSTERONE DECANOATE [Suspect]
     Active Substance: TESTOSTERONE DECANOATE
     Indication: Product used for unknown indication
     Dosage: 249 PG/MG
     Route: 065
  4. BOLDENONE [Suspect]
     Active Substance: BOLDENONE
     Indication: Product used for unknown indication
     Dosage: 160 PG/MG
     Route: 065
  5. TRENBOLONE [Suspect]
     Active Substance: TRENBOLONE
     Indication: Product used for unknown indication
     Dosage: 143 PG/MG
     Route: 065
  6. METHANDROSTENOLONE [Suspect]
     Active Substance: METHANDROSTENOLONE
     Indication: Product used for unknown indication
     Dosage: 60 PG/MG
     Route: 065

REACTIONS (2)
  - Drug abuse [Fatal]
  - Cardiac failure [Fatal]
